FAERS Safety Report 19443039 (Version 2)
Quarter: 2021Q3

REPORT INFORMATION
  Report Type: Spontaneous
  Country: US (occurrence: US)
  Receive Date: 20210621
  Receipt Date: 20210715
  Transmission Date: 20211014
  Serious: Yes (Death)
  Sender: FDA-Public Use
  Company Number: US-CHURCH + DWIGHT CO., INC.-2112924

PATIENT
  Sex: Male

DRUGS (1)
  1. ORAJEL NIGHTTIME TEETHING (BENZOCAINE) [Suspect]
     Active Substance: BENZOCAINE
     Route: 061

REACTIONS (3)
  - Death [Fatal]
  - Skin discolouration [Fatal]
  - Apnoea [Fatal]
